FAERS Safety Report 6024256-7 (Version None)
Quarter: 2008Q4

REPORT INFORMATION
  Report Type: 
  Country: None (occurrence: None)
  Receive Date: 20081229
  Receipt Date: 20081218
  Transmission Date: 20090506
  Serious: Yes (Hospitalization)
  Sender: FDA-Public Use
  Company Number: 2008SP006835

PATIENT
  Age: 73 Year
  Sex: Female
  Weight: 48 kg

DRUGS (14)
  1. TEMODAL [Suspect]
     Indication: LYMPHOMA
     Dosage: 215 MG; QD; PO
     Route: 048
     Dates: start: 20080210, end: 20080214
  2. TEMODAL [Suspect]
     Indication: LYMPHOMA
     Dosage: 215 MG; QD; PO
     Route: 048
     Dates: start: 20071129
  3. TEMODAL [Suspect]
     Indication: LYMPHOMA
     Dosage: 215 MG; QD; PO
     Route: 048
     Dates: start: 20080311
  4. METHOTREXATE [Suspect]
     Indication: LYMPHOMA
     Dosage: IV; 5.04 GM; ONCE; IV
     Route: 042
     Dates: start: 20080210, end: 20080210
  5. METHOTREXATE [Suspect]
     Indication: LYMPHOMA
     Dosage: IV; 5.04 GM; ONCE; IV
     Route: 042
     Dates: start: 20071129
  6. MEDROL [Concomitant]
  7. DEROXAT [Concomitant]
  8. LEXOMIL [Concomitant]
  9. NEXIUM [Concomitant]
  10. DIFFU K [Concomitant]
  11. STILLNOX [Concomitant]
  12. FORLAX [Concomitant]
  13. DIANTALVIC [Concomitant]
  14. ARANESP [Concomitant]

REACTIONS (5)
  - CATHETER RELATED INFECTION [None]
  - ENTEROBACTER BACTERAEMIA [None]
  - RENAL FAILURE ACUTE [None]
  - RENAL TUBULAR NECROSIS [None]
  - THROMBOCYTOPENIA [None]
